FAERS Safety Report 6181181-9 (Version None)
Quarter: 2009Q2

REPORT INFORMATION
  Report Type: 
  Country: None (occurrence: None)
  Receive Date: 20090504
  Receipt Date: 20090424
  Transmission Date: 20091009
  Serious: Yes (Hospitalization)
  Sender: FDA-Public Use
  Company Number: 2009AL002428

PATIENT
  Age: 75 Year
  Sex: Female

DRUGS (8)
  1. METFORMIN HCL [Suspect]
  2. LOSARTAN POTASSIUM [Concomitant]
  3. PROPRANOLOL [Concomitant]
  4. PANTOPRAZOLE SODIUM [Concomitant]
  5. PAROXETINE HCL [Concomitant]
  6. PREDINISON [Concomitant]
  7. FRAXIPARIN [Concomitant]
  8. EXEMESTANE [Concomitant]

REACTIONS (10)
  - AGITATION [None]
  - ASTHENIA [None]
  - BLOOD AMYLASE INCREASED [None]
  - BLOOD SODIUM DECREASED [None]
  - BUNDLE BRANCH BLOCK RIGHT [None]
  - DEHYDRATION [None]
  - DIARRHOEA [None]
  - HAEMODIALYSIS [None]
  - LACTIC ACIDOSIS [None]
  - LIPASE INCREASED [None]
